FAERS Safety Report 6584969-5 (Version None)
Quarter: 2010Q1

REPORT INFORMATION
  Report Type: 
  Country: None (occurrence: None)
  Receive Date: 20100217
  Receipt Date: 20100209
  Transmission Date: 20100710
  Serious: Yes (Hospitalization)
  Sender: FDA-Public Use
  Company Number: US-BAYER-201013593NA

PATIENT
  Age: 66 Year
  Sex: Male
  Weight: 93 kg

DRUGS (3)
  1. SORAFENIB [Suspect]
     Indication: COLORECTAL CANCER METASTATIC
     Dosage: DAYS 1 THROUGH 5 AND DAYS 8 THROUGH 12. AS OF 19-DEC-2009 - 3200 MG.
     Route: 048
     Dates: start: 20091015, end: 20091219
  2. BEVACIZUMAB [Suspect]
     Indication: COLORECTAL CANCER METASTATIC
     Dosage: DAY 1. AS OF 10-DEC-2009 - 447 MG RECEIVED.
     Route: 042
     Dates: start: 20091015, end: 20091210
  3. PHOSPHORUS [Concomitant]
     Dosage: TOTAL DAILY DOSE: 750 MG

REACTIONS (5)
  - BLOOD CREATININE INCREASED [None]
  - DEHYDRATION [None]
  - DIARRHOEA [None]
  - GASTROINTESTINAL NECROSIS [None]
  - HYPOCALCAEMIA [None]
